FAERS Safety Report 22177771 (Version 2)
Quarter: 2023Q2

REPORT INFORMATION
  Report Type: Spontaneous
  Country: LK (occurrence: LK)
  Receive Date: 20230405
  Receipt Date: 20230410
  Transmission Date: 20230722
  Serious: Yes (Other)
  Sender: FDA-Public Use
  Company Number: LK-MLMSERVICE-20230323-4180209-1

PATIENT
  Age: 3 Year
  Sex: Female

DRUGS (4)
  1. DOXORUBICIN HYDROCHLORIDE [Suspect]
     Active Substance: DOXORUBICIN HYDROCHLORIDE
     Indication: Ewing^s sarcoma
     Dosage: UNK
  2. ETOPOSIDE [Suspect]
     Active Substance: ETOPOSIDE
     Indication: Ewing^s sarcoma
     Dosage: UNK
  3. VINCRISTINE [Suspect]
     Active Substance: VINCRISTINE
     Indication: Ewing^s sarcoma
     Dosage: UNK
  4. IFOSFAMIDE [Suspect]
     Active Substance: IFOSFAMIDE
     Indication: Ewing^s sarcoma
     Dosage: UNK

REACTIONS (4)
  - Fanconi syndrome [Recovering/Resolving]
  - Hypophosphataemic osteomalacia [Recovering/Resolving]
  - Clavicle fracture [Recovering/Resolving]
  - Rib fracture [Recovering/Resolving]
